FAERS Safety Report 6441353-2 (Version None)
Quarter: 2009Q4

REPORT INFORMATION
  Report Type: 
  Country: None (occurrence: None)
  Receive Date: 20091116
  Receipt Date: 20091113
  Transmission Date: 20100525
  Serious: Yes (Other)
  Sender: FDA-Public Use
  Company Number: A0816446A

PATIENT
  Age: 31 Year
  Sex: Female

DRUGS (1)
  1. ALLI [Suspect]
     Route: 048
     Dates: end: 20091007

REACTIONS (3)
  - COLITIS [None]
  - DIARRHOEA [None]
  - MUCOUS STOOLS [None]
